FAERS Safety Report 8343293-0 (Version None)
Quarter: 2012Q2

REPORT INFORMATION
  Report Type: 
  Country: None (occurrence: None)
  Receive Date: 20120503
  Receipt Date: 20120503
  Transmission Date: 20120825
  Serious: Yes (Other)
  Sender: FDA-Public Use
  Company Number: None

PATIENT
  Age: 61 Year
  Sex: Male

DRUGS (1)
  1. CRESTOR [Suspect]
     Dosage: ONCE DAILY SUMMER 2011 TIL AROUND NOW

REACTIONS (2)
  - RASH [None]
  - SWELLING FACE [None]
